FAERS Safety Report 4413256-6 (Version None)
Quarter: 2004Q3

REPORT INFORMATION
  Report Type: 
  Country: None (occurrence: None)
  Receive Date: 20040728
  Receipt Date: 20040723
  Transmission Date: 20050211
  Serious: Yes (Disabling)
  Sender: FDA-Public Use
  Company Number: HQWYE791503MAR03

PATIENT
  Age: 43 Year
  Sex: Male

DRUGS (4)
  1. DIMETAPP [Suspect]
     Dosage: ORAL
     Route: 048
  2. ALKA-SELTZER (ACETYLSALICYLIC ACID/CITRIC ACID/SODIUM BICARBONATE) [Suspect]
  3. DRISTAN EXTRA STRENGTH (ASOPIRIN/CHLORPHENIRAMINE/PHENYLPROPANOLAMINE, [Suspect]
     Dosage: ORAL
     Route: 048
  4. ROBITUSSIN CF (GUAIFENESIN/DEXTROMETHORPHAN/PHENYLPROPANOLAMINE, SYRUP [Suspect]
     Dosage: ORAL
     Route: 048

REACTIONS (2)
  - CEREBROVASCULAR ACCIDENT [None]
  - INTRACRANIAL ANEURYSM [None]
